FAERS Safety Report 11072309 (Version 1)
Quarter: 2015Q2

REPORT INFORMATION
  Report Type: Spontaneous
  Country: US (occurrence: None)
  Receive Date: 20150427
  Receipt Date: 20150427
  Transmission Date: 20150821
  Serious: Yes (Other)
  Sender: FDA-Public Use
  Company Number: None

PATIENT
  Age: 84 Year
  Sex: Male
  Weight: 74 kg

DRUGS (1)
  1. PROTAMINE [Suspect]
     Active Substance: PROTAMINE
     Indication: CARDIAC OPERATION
     Dosage: 400 MG TOTAL DOSE, ONE TIME, INTRAVENOUS
     Route: 042
     Dates: start: 20150424, end: 20150424

REACTIONS (1)
  - Blood pressure decreased [None]

NARRATIVE: CASE EVENT DATE: 20150424
